FAERS Safety Report 8309830-7 (Version None)
Quarter: 2012Q2

REPORT INFORMATION
  Report Type: 
  Country: None (occurrence: None)
  Receive Date: 20120425
  Receipt Date: 20120420
  Transmission Date: 20120825
  Serious: Yes (Death)
  Sender: FDA-Public Use
  Company Number: BR-SANOFI-AVENTIS-2012SA028055

PATIENT
  Age: 32 Year
  Sex: Female
  Weight: 73 kg

DRUGS (2)
  1. AAS INFANTIL [Concomitant]
     Indication: ANTICOAGULANT THERAPY
  2. ENOXAPARIN SODIUM [Suspect]
     Route: 058

REACTIONS (2)
  - FOETAL DEATH [None]
  - FOETAL EXPOSURE TIMING UNSPECIFIED [None]
